FAERS Safety Report 19052554 (Version 1)
Quarter: 2021Q1

REPORT INFORMATION
  Report Type: Spontaneous
  Country: CA (occurrence: CA)
  Receive Date: 20210324
  Receipt Date: 20210324
  Transmission Date: 20210420
  Serious: Yes (Other)
  Sender: FDA-Public Use
  Company Number: CA-ROCHE-2796204

PATIENT
  Age: 72 Year
  Sex: Male

DRUGS (10)
  1. ESBRIET [Suspect]
     Active Substance: PIRFENIDONE
     Indication: IDIOPATHIC PULMONARY FIBROSIS
     Route: 048
  2. AVAMYS [Concomitant]
     Active Substance: FLUTICASONE FUROATE
  3. ROSUVASTATIN. [Concomitant]
     Active Substance: ROSUVASTATIN
  4. DRONEDARONE [Concomitant]
     Active Substance: DRONEDARONE
  5. TELMISARTAN. [Concomitant]
     Active Substance: TELMISARTAN
  6. AMIODARONE HYDROCHLORIDE. [Suspect]
     Active Substance: AMIODARONE HYDROCHLORIDE
     Indication: ATRIAL FIBRILLATION
     Route: 065
  7. METOPROLOL. [Concomitant]
     Active Substance: METOPROLOL
  8. RABEPRAZOLE [Concomitant]
     Active Substance: RABEPRAZOLE
  9. TYLENOL [Concomitant]
     Active Substance: ACETAMINOPHEN
  10. XARELTO [Concomitant]
     Active Substance: RIVAROXABAN

REACTIONS (3)
  - Rash [Unknown]
  - Drug ineffective [Unknown]
  - Coronary artery disease [Unknown]
